FAERS Safety Report 7941554-8 (Version None)
Quarter: 2011Q4

REPORT INFORMATION
  Report Type: 
  Country: None (occurrence: None)
  Receive Date: 20111128
  Receipt Date: 20111123
  Transmission Date: 20120403
  Serious: Yes (Hospitalization)
  Sender: FDA-Public Use
  Company Number: JP-JNJFOC-20111003188

PATIENT
  Sex: Female

DRUGS (9)
  1. LOXONIN [Suspect]
     Indication: PAIN
     Dosage: 1 PER 1 DAY
     Route: 048
     Dates: start: 20110203, end: 20110929
  2. METHYCOBAL [Concomitant]
     Indication: PAIN
     Dosage: 1 PER 1 DAY
     Route: 048
     Dates: start: 20110203, end: 20110920
  3. LORAZEPAM [Concomitant]
     Indication: PANIC DISORDER
     Dosage: 1 PER 1 DAY AS NECESSARY
     Route: 048
     Dates: start: 20110203
  4. DEPAS [Concomitant]
     Indication: INSOMNIA
     Dosage: 1 PER 1 DAY
     Route: 048
  5. LENDORMIN [Concomitant]
     Indication: INSOMNIA
     Route: 048
  6. TRAMADOL HYDROCHLORIDE/ACETAMINOPHEN [Suspect]
     Indication: PAIN
     Dosage: 1 PER 1 DAY
     Route: 048
     Dates: start: 20110928, end: 20110929
  7. ALPRAZOLAM [Concomitant]
     Indication: ANXIETY DISORDER
     Dosage: 1 PER 1 DAY
     Route: 048
  8. ZOLPIDEM [Concomitant]
     Indication: PANIC DISORDER
     Dosage: 1 PER 1 DAY
     Route: 048
     Dates: start: 20110203
  9. MUCOSTA [Concomitant]
     Indication: PAIN
     Dosage: 1 PER 1 DAY
     Route: 048
     Dates: start: 20110203, end: 20110929

REACTIONS (4)
  - DYSPNOEA [None]
  - MALAISE [None]
  - CHEST DISCOMFORT [None]
  - ANXIETY DISORDER [None]
